FAERS Safety Report 9270844 (Version 1)
Quarter: 2013Q2

REPORT INFORMATION
  Report Type: Spontaneous
  Country: US (occurrence: US)
  Receive Date: 20130505
  Receipt Date: 20130505
  Transmission Date: 20140414
  Serious: Yes (Death)
  Sender: FDA-Public Use
  Company Number: US-OTSUKA-US-2013-10793

PATIENT
  Age: 65 Year
  Sex: Male

DRUGS (10)
  1. SAMSCA [Suspect]
     Indication: HYPONATRAEMIA
     Dosage: 30 MG MILLIGRAM(S), DAILY DOSE
     Dates: start: 20120315, end: 20130330
  2. SAMSCA [Suspect]
     Dosage: 60 MG MILLIGRAM(S), DAILY DOSE
  3. WARFARIN [Concomitant]
     Indication: ATRIAL FIBRILLATION
  4. METOLAZONE [Concomitant]
     Indication: PRODUCT USED FOR UNKNOWN INDICATION
  5. BUMETANIDE [Concomitant]
     Indication: PRODUCT USED FOR UNKNOWN INDICATION
  6. SPIRONOLACTONE [Concomitant]
     Indication: POLYURIA
  7. SERTRALINE [Concomitant]
     Indication: DEPRESSION
  8. ANTIBIOTICS [Concomitant]
     Indication: CELLULITIS
  9. INSULIN GLARGINE [Concomitant]
     Indication: DIABETES MELLITUS
  10. INSULIN ASPART [Concomitant]
     Indication: DIABETES MELLITUS

REACTIONS (1)
  - Cardiac failure [Fatal]
